FAERS Safety Report 6253247-6 (Version None)
Quarter: 2009Q3

REPORT INFORMATION
  Report Type: 
  Country: None (occurrence: None)
  Receive Date: 20090701
  Receipt Date: 20090629
  Transmission Date: 20100115
  Serious: Yes (Hospitalization)
  Sender: FDA-Public Use
  Company Number: ES-BRISTOL-MYERS SQUIBB COMPANY-14683254

PATIENT
  Age: 69 Year
  Sex: Female

DRUGS (4)
  1. ORENCIA [Suspect]
     Indication: RHEUMATOID ARTHRITIS
     Dosage: ORENCIA 250MG POWDER 1 VIAL + 1 SYRINGE SOLN FOR INF 1.
     Route: 042
     Dates: start: 20081216, end: 20090311
  2. METHOTREXATE [Suspect]
     Indication: RHEUMATOID ARTHRITIS
     Route: 048
  3. DACORTIN [Suspect]
     Indication: RHEUMATOID ARTHRITIS
     Dosage: DACORTIN 5 MG TABS.
     Route: 048
  4. GELOCATIL [Concomitant]
     Indication: RHEUMATOID ARTHRITIS
     Dosage: GELOCATIL 1G TABS
     Route: 048

REACTIONS (1)
  - HEPATITIS [None]
